FAERS Safety Report 24201835 (Version 1)
Quarter: 2024Q3

REPORT INFORMATION
  Report Type: Spontaneous
  Country: US (occurrence: US)
  Receive Date: 20240812
  Receipt Date: 20240812
  Transmission Date: 20241017
  Serious: No
  Sender: BRISTOL MYERS SQUIBB
  Company Number: US-BRISTOL-MYERS SQUIBB COMPANY-2024-124438

PATIENT
  Age: 60 Year
  Sex: Male
  Weight: 97.52 kg

DRUGS (5)
  1. NULOJIX [Suspect]
     Active Substance: BELATACEPT
     Indication: Renal transplant
  2. PREDNISONE [Suspect]
     Active Substance: PREDNISONE
     Indication: Product used for unknown indication
  3. HUMALOG [Concomitant]
     Active Substance: INSULIN LISPRO
     Indication: Product used for unknown indication
  4. TRESIBA [Concomitant]
     Active Substance: INSULIN DEGLUDEC
     Indication: Product used for unknown indication
  5. AZATHIOPRINE [Concomitant]
     Active Substance: AZATHIOPRINE
     Indication: Product used for unknown indication

REACTIONS (13)
  - Increased tendency to bruise [Unknown]
  - Haemorrhage [Unknown]
  - Swelling face [Unknown]
  - Bone pain [Unknown]
  - Skin atrophy [Unknown]
  - Impaired healing [Unknown]
  - Mood altered [Unknown]
  - Mental status changes [Unknown]
  - Peripheral swelling [Unknown]
  - Joint swelling [Unknown]
  - Asthenia [Unknown]
  - Weight increased [Unknown]
  - Prescribed underdose [Unknown]
